FAERS Safety Report 13595854 (Version 1)
Quarter: 2017Q2

REPORT INFORMATION
  Report Type: Spontaneous
  Country: US (occurrence: US)
  Receive Date: 20170530
  Receipt Date: 20170530
  Transmission Date: 20170830
  Serious: No
  Sender: FDA-Public Use
  Company Number: None

PATIENT
  Age: 70 Year
  Sex: Female

DRUGS (1)
  1. TALTZ [Suspect]
     Active Substance: IXEKIZUMAB
     Dosage: ?          OTHER FREQUENCY:MONTHLY;?
     Route: 058

REACTIONS (8)
  - Headache [None]
  - Rhinorrhoea [None]
  - Eye pruritus [None]
  - Back pain [None]
  - Sinus headache [None]
  - Swelling face [None]
  - Lacrimation increased [None]
  - Dysuria [None]

NARRATIVE: CASE EVENT DATE: 20170424
